FAERS Safety Report 6813751-6 (Version None)
Quarter: 2010Q3

REPORT INFORMATION
  Report Type: 
  Country: None (occurrence: None)
  Receive Date: 20100701
  Receipt Date: 20100624
  Transmission Date: 20110219
  Serious: Yes (Other)
  Sender: FDA-Public Use
  Company Number: US-AMGEN-QUU420386

PATIENT
  Sex: Female

DRUGS (2)
  1. NPLATE [Suspect]
     Indication: IDIOPATHIC THROMBOCYTOPENIC PURPURA
  2. UNSPECIFIED STEROIDS [Concomitant]

REACTIONS (4)
  - DRUG INTERACTION [None]
  - HEADACHE [None]
  - HERPES ZOSTER [None]
  - THERAPEUTIC RESPONSE DECREASED [None]
